FAERS Safety Report 15448947 (Version 1)
Quarter: 2018Q3

REPORT INFORMATION
  Report Type: Spontaneous
  Country: US (occurrence: US)
  Receive Date: 20180926
  Receipt Date: 20180926
  Transmission Date: 20181010
  Serious: Yes (Hospitalization)
  Sender: FDA-Public Use
  Company Number: None

PATIENT
  Age: 64 Year
  Sex: Female

DRUGS (4)
  1. GLATIRAMER [Suspect]
     Active Substance: GLATIRAMER
     Indication: MULTIPLE SCLEROSIS
     Dosage: ?          OTHER FREQUENCY:THREE TIMES A WEEK;?
     Route: 058
     Dates: start: 20180612, end: 20180710
  2. LANTUS 100 [Concomitant]
  3. HYDROCHLOROT 25MG [Concomitant]
  4. HUMALOG 100 [Concomitant]

REACTIONS (4)
  - Therapy cessation [None]
  - Nephrolithiasis [None]
  - Urinary incontinence [None]
  - Product substitution issue [None]

NARRATIVE: CASE EVENT DATE: 20180725
